FAERS Safety Report 9708912 (Version 3)
Quarter: 2014Q1

REPORT INFORMATION
  Report Type: Spontaneous
  Country: SE (occurrence: SE)
  Receive Date: 20131125
  Receipt Date: 20140203
  Transmission Date: 20141002
  Serious: Yes (Hospitalization, Other)
  Sender: FDA-Public Use
  Company Number: PHHY2013SE134572

PATIENT
  Sex: Female

DRUGS (1)
  1. TEGRETOL [Suspect]
     Dosage: 400 MG, BID (400 MG IN MORNING AND 400 MG IN EVENING)
     Dates: start: 201311

REACTIONS (4)
  - Tachycardia [Recovering/Resolving]
  - Diaphragmatic disorder [Recovering/Resolving]
  - Anxiety [Recovering/Resolving]
  - Cardiac disorder [Recovering/Resolving]
